FAERS Safety Report 15943718 (Version 1)
Quarter: 2019Q1

REPORT INFORMATION
  Report Type: Spontaneous
  Country: US (occurrence: US)
  Receive Date: 20190118
  Receipt Date: 20190118
  Transmission Date: 20190417
  Serious: Yes (Hospitalization)
  Sender: FDA-Public Use
  Company Number: None

PATIENT
  Age: 60 Year
  Sex: Male
  Weight: 95.3 kg

DRUGS (13)
  1. PEPCID [Concomitant]
     Active Substance: FAMOTIDINE
  2. MULTIVITAMIN [Concomitant]
     Active Substance: VITAMINS
  3. OTC ALLERGY MEDICATION [Concomitant]
  4. ROSUVASTATIN. [Concomitant]
     Active Substance: ROSUVASTATIN
  5. ACIDOPHILUS PROBIOTIC-4 [Concomitant]
  6. RANITITDINE [Concomitant]
  7. IPILIMUMAB [Suspect]
     Active Substance: IPILIMUMAB
     Dates: start: 20190103
  8. VITAMIN C [Concomitant]
     Active Substance: ASCORBIC ACID
  9. FISH OIL [Concomitant]
     Active Substance: FISH OIL
  10. LUPRON [Concomitant]
     Active Substance: LEUPROLIDE ACETATE
  11. IPILIMUMAB [Suspect]
     Active Substance: IPILIMUMAB
     Indication: PROSTATE CANCER METASTATIC
     Route: 042
     Dates: start: 20181029
  12. CALCIUM [Concomitant]
     Active Substance: CALCIUM
  13. MIRABEGRON [Concomitant]
     Active Substance: MIRABEGRON

REACTIONS (5)
  - Dyspnoea [None]
  - Pleural effusion [None]
  - Chest pain [None]
  - Pneumonitis [None]
  - Computerised tomogram thorax abnormal [None]

NARRATIVE: CASE EVENT DATE: 20190110
